FAERS Safety Report 6037822-X (Version None)
Quarter: 2009Q1

REPORT INFORMATION
  Report Type: 
  Country: None (occurrence: None)
  Receive Date: 20090113
  Receipt Date: 20081223
  Transmission Date: 20090719
  Serious: Yes (Other)
  Sender: FDA-Public Use
  Company Number: 20080380/

PATIENT
  Age: 54 Year
  Sex: Male

DRUGS (1)
  1. VENOFER [Suspect]
     Indication: DRUG USE FOR UNKNOWN INDICATION
     Dosage: 50 MG INTRAVENOUS
     Route: 042
     Dates: start: 20080912, end: 20080912

REACTIONS (3)
  - HAEMOLYSIS [None]
  - HEPATITIS ACUTE [None]
  - PANCREATITIS ACUTE [None]
